FAERS Safety Report 5452688-4 (Version None)
Quarter: 2007Q3

REPORT INFORMATION
  Report Type: 
  Country: None (occurrence: None)
  Receive Date: 20070914
  Receipt Date: 20070906
  Transmission Date: 20080115
  Serious: Yes (Other)
  Sender: FDA-Public Use
  Company Number: FR-JNJFOC-20070901295

PATIENT
  Age: 30 Year
  Sex: Male

DRUGS (3)
  1. VERMOX [Suspect]
     Route: 048
  2. VERMOX [Suspect]
     Route: 048
  3. VERMOX [Suspect]
     Indication: HEPATIC ECHINOCOCCIASIS
     Route: 048

REACTIONS (1)
  - CYTOLYTIC HEPATITIS [None]
